FAERS Safety Report 8305786-1 (Version None)
Quarter: 2012Q2

REPORT INFORMATION
  Report Type: 
  Country: None (occurrence: None)
  Receive Date: 20120423
  Receipt Date: 20120416
  Transmission Date: 20120825
  Serious: Yes (Hospitalization)
  Sender: FDA-Public Use
  Company Number: 2012SP001133

PATIENT
  Age: 47 Year
  Sex: Female

DRUGS (5)
  1. LATUDA [Suspect]
     Indication: BIPOLAR DISORDER
     Route: 048
     Dates: start: 20120201
  2. LAMICTAL [Concomitant]
     Indication: BIPOLAR DISORDER
  3. TRILEPTAL [Concomitant]
     Indication: BIPOLAR DISORDER
     Dates: start: 20120415
  4. KLONOPIN [Concomitant]
     Indication: PRODUCT USED FOR UNKNOWN INDICATION
  5. LATUDA [Suspect]
     Route: 048
     Dates: end: 20120415

REACTIONS (5)
  - FEELING DRUNK [None]
  - COMPLICATED MIGRAINE [None]
  - CONVERSION DISORDER [None]
  - SPEECH DISORDER [None]
  - DYSARTHRIA [None]
